FAERS Safety Report 8461554-1 (Version None)
Quarter: 2012Q2

REPORT INFORMATION
  Report Type: 
  Country: None (occurrence: None)
  Receive Date: 20120625
  Receipt Date: 20120612
  Transmission Date: 20120825
  Serious: Yes (Hospitalization, Other)
  Sender: FDA-Public Use
  Company Number: CA-JNJFOC-20120602736

PATIENT
  Sex: Female
  Weight: 70 kg

DRUGS (9)
  1. ACEBUTOLOL [Concomitant]
     Indication: CARDIAC DISORDER
     Route: 048
  2. REMICADE [Suspect]
     Indication: RHEUMATOID ARTHRITIS
     Route: 042
     Dates: start: 20120315, end: 20120315
  3. REMICADE [Suspect]
     Dosage: 16 INFUSIONS
     Route: 042
     Dates: start: 20081218, end: 20110316
  4. METHOTREXATE [Concomitant]
     Indication: RHEUMATOID ARTHRITIS
     Route: 058
  5. AMITRIPTYLINE HCL [Concomitant]
     Indication: SEDATION
     Dosage: QHRS
     Route: 048
  6. ANCEF [Concomitant]
     Indication: INFECTION
     Route: 042
  7. PREDNISONE TAB [Concomitant]
     Indication: RHEUMATOID ARTHRITIS
     Route: 048
  8. ACETAMINOPHEN [Concomitant]
     Indication: PAIN MANAGEMENT
     Dosage: PRN OD
     Route: 048
  9. ESTRACE [Concomitant]
     Indication: HORMONE REPLACEMENT THERAPY
     Route: 048

REACTIONS (7)
  - OSTEOMYELITIS [None]
  - ARTHRITIS BACTERIAL [None]
  - PROPIONIBACTERIUM INFECTION [None]
  - WOUND INFECTION STAPHYLOCOCCAL [None]
  - SYSTEMIC INFLAMMATORY RESPONSE SYNDROME [None]
  - MUSCULOSKELETAL DISCOMFORT [None]
  - BRAIN ABSCESS [None]
